FAERS Safety Report 13733366 (Version 1)
Quarter: 2017Q3

REPORT INFORMATION
  Report Type: Spontaneous
  Country: US (occurrence: US)
  Receive Date: 20170707
  Receipt Date: 20170707
  Transmission Date: 20171127
  Serious: No
  Sender: FDA-Public Use
  Company Number: US-ROCHE-1503064

PATIENT
  Age: 60 Year
  Sex: Female

DRUGS (4)
  1. HERCEPTIN [Suspect]
     Active Substance: TRASTUZUMAB
     Indication: BREAST CANCER
     Route: 065
  2. PERJETA [Suspect]
     Active Substance: PERTUZUMAB
     Indication: BREAST CANCER
     Route: 065
  3. DOCETAXEL. [Concomitant]
     Active Substance: DOCETAXEL
  4. CARBOPLATIN. [Concomitant]
     Active Substance: CARBOPLATIN

REACTIONS (6)
  - Vulvovaginal inflammation [Unknown]
  - Mucosal inflammation [Unknown]
  - Muscular weakness [Unknown]
  - Pain [Unknown]
  - Skin exfoliation [Unknown]
  - Fatigue [Unknown]
